FAERS Safety Report 8814585 (Version 1)
Quarter: 2012Q4

REPORT INFORMATION
  Report Type: Spontaneous
  Country: US (occurrence: None)
  Receive Date: 20120926
  Receipt Date: 20120926
  Transmission Date: 20130627
  Serious: Yes (Death, Hospitalization, Other)
  Sender: FDA-Public Use
  Company Number: CPI 3821

PATIENT
  Age: 19 Year
  Sex: Female

DRUGS (3)
  1. ACETADOTE [Suspect]
     Indication: DRESS SYNDROME
  2. CEFTRIAXONE [Concomitant]
  3. PREDNIZOLONE [Concomitant]

REACTIONS (6)
  - Encephalopathy [None]
  - Staphylococcal infection [None]
  - Metabolic acidosis [None]
  - Respiratory alkalosis [None]
  - Lactic acidosis [None]
  - General physical health deterioration [None]
